FAERS Safety Report 7969652-3 (Version None)
Quarter: 2011Q4

REPORT INFORMATION
  Report Type: 
  Country: None (occurrence: None)
  Receive Date: 20111208
  Receipt Date: 20111202
  Transmission Date: 20120403
  Serious: Yes (Death)
  Sender: FDA-Public Use
  Company Number: DKLU1075169

PATIENT
  Age: 10 Year
  Sex: Female

DRUGS (2)
  1. SABRIL [Suspect]
     Indication: COMPLEX PARTIAL SEIZURES
     Dosage: 1500 ML MILLILITRE(S), 2 IN 1 D, ORAL
     Route: 048
     Dates: start: 20091207
  2. SABRIL [Suspect]
     Indication: COMPLEX PARTIAL SEIZURES
     Dates: end: 20090101

REACTIONS (2)
  - CONDITION AGGRAVATED [None]
  - MALAISE [None]
